FAERS Safety Report 4905521-0 (Version None)
Quarter: 2006Q1

REPORT INFORMATION
  Report Type: 
  Country: None (occurrence: None)
  Receive Date: 20060208
  Receipt Date: 20060116
  Transmission Date: 20060701
  Serious: Yes (Other)
  Sender: FDA-Public Use
  Company Number: PHBS2006BR01017

PATIENT
  Age: 50 Year
  Sex: Male
  Weight: 75 kg

DRUGS (4)
  1. TEGRETOL [Suspect]
     Indication: EPILEPSY
     Dosage: 200 MG/D
     Route: 048
     Dates: end: 20051101
  2. TRILEPTAL [Suspect]
     Indication: EPILEPSY
     Dosage: 300 MG, BID
     Route: 048
     Dates: start: 20051124, end: 20051101
  3. TRILEPTAL [Suspect]
     Dosage: 300 MG/D
     Route: 048
     Dates: start: 20051101
  4. BENERVA [Concomitant]
     Indication: ASTHENIA
     Dosage: UNK, QD
     Route: 048
     Dates: start: 20050701

REACTIONS (20)
  - AMNESIA [None]
  - ASTHENIA [None]
  - AURA [None]
  - CEREBROVASCULAR DISORDER [None]
  - DEPRESSION [None]
  - DIPLOPIA [None]
  - DIZZINESS [None]
  - ERECTILE DYSFUNCTION [None]
  - FALL [None]
  - GRAND MAL CONVULSION [None]
  - HEADACHE [None]
  - LOSS OF CONSCIOUSNESS [None]
  - LOSS OF LIBIDO [None]
  - MUSCLE DISORDER [None]
  - NAUSEA [None]
  - RESPIRATORY ARREST [None]
  - SOMNOLENCE [None]
  - SPERM COUNT DECREASED [None]
  - SPERMATOZOA ABNORMAL [None]
  - URTICARIA [None]
